FAERS Safety Report 15350545 (Version 1)
Quarter: 2018Q3

REPORT INFORMATION
  Report Type: Spontaneous
  Country: GB (occurrence: GB)
  Receive Date: 20180905
  Receipt Date: 20180905
  Transmission Date: 20181010
  Serious: Yes (Hospitalization)
  Sender: FDA-Public Use
  Company Number: GB-ACCORD-071307

PATIENT
  Age: 97 Year

DRUGS (14)
  1. FULTIUM?D3 [Concomitant]
     Active Substance: CHOLECALCIFEROL
  2. LIQUIFILM TEARS [Concomitant]
     Active Substance: POLYVINYL ALCOHOL
     Dosage: USE AS DIRECTED.
  3. BISOPROLOL [Concomitant]
     Active Substance: BISOPROLOL
     Dosage: EACH MORNING.
  4. E45 [Concomitant]
     Active Substance: LANOLIN\LIGHT MINERAL OIL\PARAFFIN
     Indication: PRURITUS
  5. FUROSEMIDE. [Suspect]
     Active Substance: FUROSEMIDE
     Indication: PRODUCT USED FOR UNKNOWN INDICATION
     Dosage: MORNING AND LUNCHTIME
  6. FEXOFENADINE/FEXOFENADINE HYDROCHLORIDE [Concomitant]
  7. HYDROMOL CREAM [Concomitant]
     Dosage: APPLY TO SKIN OR USE AS A SOAP SUBSTITUTE.
  8. ACETYLSALICYLIC ACID [Concomitant]
     Active Substance: ASPIRIN
  9. MACROGOL/MACROGOL STEARATE [Concomitant]
  10. DICLOFENAC [Suspect]
     Active Substance: DICLOFENAC
     Indication: PRODUCT USED FOR UNKNOWN INDICATION
     Dosage: 2 TIMES A DAY
  11. PARACETAMOL [Concomitant]
     Active Substance: ACETAMINOPHEN
     Dosage: TWO TO BE TAKEN REGULARLY; 3 OR 4 TIMES DAILY
  12. OMEPRAZOLE. [Concomitant]
     Active Substance: OMEPRAZOLE
     Dosage: EACH MORNING.
  13. SIMVASTATIN. [Concomitant]
     Active Substance: SIMVASTATIN
     Dosage: EACH NIGHT.
  14. CODEINE [Concomitant]
     Active Substance: CODEINE

REACTIONS (1)
  - Acute kidney injury [Recovered/Resolved]

NARRATIVE: CASE EVENT DATE: 20171017
